FAERS Safety Report 7423097-3 (Version None)
Quarter: 2011Q2

REPORT INFORMATION
  Report Type: 
  Country: None (occurrence: None)
  Receive Date: 20110414
  Receipt Date: 20110414
  Transmission Date: 20111010
  Serious: Yes (Life-Threatening, Hospitalization)
  Sender: FDA-Public Use
  Company Number: None

PATIENT
  Sex: Female
  Weight: 57.6 kg

DRUGS (4)
  1. CRESTOR [Concomitant]
  2. IRINOTECAN [Suspect]
     Dosage: 233 MG/M2 EVERY 14 DAYS IV
     Route: 042
     Dates: start: 20110404
  3. LEXAPRO [Concomitant]
  4. SYNTHROID [Concomitant]

REACTIONS (1)
  - FEBRILE NEUTROPENIA [None]
